FAERS Safety Report 16451318 (Version 2)
Quarter: 2019Q2

REPORT INFORMATION
  Report Type: Spontaneous
  Country: US (occurrence: US)
  Receive Date: 20190619
  Receipt Date: 20190626
  Transmission Date: 20190711
  Serious: No
  Sender: FDA-Public Use
  Company Number: US-PFIZER INC-2019261466

PATIENT
  Age: 83 Year
  Sex: Female

DRUGS (7)
  1. IBRANCE [Suspect]
     Active Substance: PALBOCICLIB
     Dosage: UNK, CYCLIC (TAKES EVERY NIGHT AT 6:00, 21 DAYS ON AND 7 DAYS OFF)
     Dates: end: 201906
  2. IRON [Concomitant]
     Active Substance: IRON
     Dosage: UNK, DAILY (65 MG EQUIVALENT TO 325MG FERROUS SULFATE TABLET BY MOUTH A DAY)
     Route: 048
     Dates: start: 201901
  3. ZIOPTAN [Concomitant]
     Active Substance: TAFLUPROST
     Indication: OCULAR HYPERTENSION
     Dosage: 1 GTT, 1X/DAY (ONE DROP EACH NIGHT TO RIGHT EYE)
     Route: 047
  4. LETROZOLE. [Concomitant]
     Active Substance: LETROZOLE
     Dosage: UNK (TAKES AT 9PM)
  5. NATURE MADE CALCIUM WITH VITAMIN D [Concomitant]
     Indication: SUPPLEMENTATION THERAPY
     Dosage: 500 MG, 2X/DAY
     Route: 048
  6. ONE A DAY WOMEN^S [Concomitant]
     Active Substance: MINERALS\VITAMINS
     Dosage: UNK, 1X/DAY (ONCE A DAY (TABLET BY MOUTH ONE A DAY)
  7. PRESERVISION AREDS 2 [Concomitant]
     Active Substance: MINERALS\VITAMINS
     Indication: VITAMIN SUPPLEMENTATION
     Dosage: 2 DF, DAILY (2 CAPSULES BY MOUTH)
     Route: 048

REACTIONS (2)
  - White blood cell count decreased [Not Recovered/Not Resolved]
  - Alopecia [Unknown]
